FAERS Safety Report 20579864 (Version 1)
Quarter: 2022Q1

REPORT INFORMATION
  Report Type: Spontaneous
  Country: CA (occurrence: CA)
  Receive Date: 20220310
  Receipt Date: 20220310
  Transmission Date: 20220423
  Serious: Yes (Life-Threatening)
  Sender: FDA-Public Use
  Company Number: CA-PFIZER INC-202200358471

PATIENT
  Age: 5 Year
  Sex: Male
  Weight: 18 kg

DRUGS (16)
  1. CYTARABINE [Suspect]
     Active Substance: CYTARABINE
     Indication: Acute lymphocytic leukaemia
     Dosage: 1500 MG, 1 EVERY 12 HOURS
     Route: 041
  2. AMLODIPINE [Concomitant]
     Active Substance: AMLODIPINE BESYLATE
     Dosage: UNK
     Route: 065
  3. CHOLECALCIFEROL [Concomitant]
     Active Substance: CHOLECALCIFEROL
     Dosage: UNK
  4. CYCLOPHOSPHAMIDE [Concomitant]
     Active Substance: CYCLOPHOSPHAMIDE
  5. DEXAMETHASONE [Concomitant]
     Active Substance: DEXAMETHASONE
     Dosage: UNK (DOSAGE FORM: LIQUID INTRAARTICULAR)
     Route: 014
  6. GABAPENTIN [Concomitant]
     Active Substance: GABAPENTIN
  7. IMATINIB [Concomitant]
     Active Substance: IMATINIB
  8. LEUCOVORIN [Concomitant]
     Active Substance: LEUCOVORIN
     Dosage: UNK
  9. METHOTREXATE [Concomitant]
     Active Substance: METHOTREXATE
     Dosage: UNK
     Route: 037
  10. CYTARABINE/HYDROCORTISONE/METHOTREXATE [Concomitant]
     Dosage: UNK
  11. NEUPOGEN [Concomitant]
     Active Substance: FILGRASTIM
  12. ONCOVIN [Concomitant]
     Active Substance: VINCRISTINE SULFATE
     Dosage: UNK
  13. ONDANSETRON [Concomitant]
     Active Substance: ONDANSETRON
     Dosage: UNK
  14. PEGASPARGASE [Concomitant]
     Active Substance: PEGASPARGASE
     Route: 042
  15. POLYETHYLENE GLYCOLS [Concomitant]
     Active Substance: POLYETHYLENE GLYCOLS
     Dosage: UNK
  16. POTASSIUM CHLORIDE [Concomitant]
     Active Substance: POTASSIUM CHLORIDE

REACTIONS (2)
  - Aplastic anaemia [Unknown]
  - Bone marrow failure [Unknown]
